FAERS Safety Report 7963823-8 (Version None)
Quarter: 2011Q4

REPORT INFORMATION
  Report Type: 
  Country: None (occurrence: None)
  Receive Date: 20111208
  Receipt Date: 20111108
  Transmission Date: 20120403
  Serious: No
  Sender: FDA-Public Use
  Company Number: US-BAYER-2011-108914

PATIENT
  Age: 84 Year
  Sex: Female
  Weight: 62.132 kg

DRUGS (6)
  1. ALEVE (CAPLET) [Suspect]
     Indication: ARTHRITIS
     Dosage: 1 TAB TWICE DAILY
     Route: 048
     Dates: start: 20111008
  2. LISINOPRIL [Concomitant]
  3. WELLBUTRIN [Concomitant]
  4. MULTI-VITAMIN [Concomitant]
  5. NORTRIPTYLINE HCL [Concomitant]
  6. LEXAPRO [Concomitant]

REACTIONS (1)
  - CONSTIPATION [None]
